FAERS Safety Report 5959836-8 (Version None)
Quarter: 2008Q4

REPORT INFORMATION
  Report Type: 
  Country: None (occurrence: None)
  Receive Date: 20081119
  Receipt Date: 20081119
  Transmission Date: 20090506
  Serious: Yes (Hospitalization)
  Sender: FDA-Public Use
  Company Number: None

PATIENT
  Sex: Female

DRUGS (8)
  1. DASATINIB 50MG BRISTOL-MYERS SQUIBB [Suspect]
     Indication: LEIOMYOSARCOMA
     Dosage: 50MG  BID PO
     Route: 048
     Dates: start: 20081022, end: 20081116
  2. DESATINIB 20MG BRISTOL-MYERS SQUIB [Suspect]
     Indication: LEIOMYOSARCOMA
     Dosage: 70MG BID PO, STOPPED 70MG
     Route: 048
     Dates: start: 20080925, end: 20081020
  3. GLIPIZIDE [Concomitant]
  4. ATENOLOL [Concomitant]
  5. LISINOPRIL [Concomitant]
  6. LOMOTIL [Concomitant]
  7. MULTI-VITIMIN [Concomitant]
  8. LASIX [Concomitant]

REACTIONS (17)
  - ABDOMINAL PAIN [None]
  - CHILLS [None]
  - COUGH [None]
  - DECREASED APPETITE [None]
  - DIARRHOEA [None]
  - DIZZINESS [None]
  - FAILURE TO THRIVE [None]
  - FATIGUE [None]
  - HAEMATOCHEZIA [None]
  - HEADACHE [None]
  - NAUSEA [None]
  - NIGHT SWEATS [None]
  - PYREXIA [None]
  - RASH PUSTULAR [None]
  - RETCHING [None]
  - VOMITING [None]
  - WEIGHT DECREASED [None]
